FAERS Safety Report 4549340-6 (Version None)
Quarter: 2004Q4

REPORT INFORMATION
  Report Type: 
  Country: None (occurrence: None)
  Receive Date: 20041230
  Receipt Date: 20040628
  Transmission Date: 20050328
  Serious: Yes (Hospitalization)
  Sender: FDA-Public Use
  Company Number: 04-06-0928

PATIENT
  Age: 32 Year
  Sex: Female

DRUGS (2)
  1. CLOZAPINE [Suspect]
     Indication: BIPOLAR DISORDER
     Dosage: 300-700MG QD ORAL
     Route: 048
     Dates: start: 19991001
  2. CLOZAPINE [Suspect]
     Indication: SCHIZOAFFECTIVE DISORDER
     Dosage: 300-700MG QD ORAL
     Route: 048
     Dates: start: 19991001

REACTIONS (1)
  - TREATMENT NONCOMPLIANCE [None]
